FAERS Safety Report 6282361-4 (Version None)
Quarter: 2009Q3

REPORT INFORMATION
  Report Type: 
  Country: None (occurrence: None)
  Receive Date: 20090724
  Receipt Date: 20090717
  Transmission Date: 20100115
  Serious: Yes (Hospitalization)
  Sender: FDA-Public Use
  Company Number: DE-JNJFOC-20090705439

PATIENT
  Age: 78 Year
  Sex: Female
  Weight: 83 kg

DRUGS (14)
  1. DURAGESIC-100 [Suspect]
     Indication: OSTEOARTHRITIS
     Route: 062
  2. CYMBALTA [Interacting]
     Indication: DEPRESSION
     Route: 048
  3. FUROSEMIDE [Interacting]
     Indication: HYPERTENSION
     Route: 048
  4. HCT HEXAL [Suspect]
     Indication: HYPERTENSION
     Route: 048
  5. QUINAPRIL [Suspect]
     Indication: HYPERTENSION
     Route: 048
  6. SIMVASTATIN [Concomitant]
     Indication: DYSLIPIDAEMIA
     Route: 048
  7. CLOPIDOGREL [Concomitant]
     Indication: ISCHAEMIC HEART DISEASE PROPHYLAXIS
     Route: 048
  8. ALLO [Concomitant]
     Indication: HYPERURICAEMIA
     Route: 048
  9. BISOPROLOL [Concomitant]
     Indication: HYPERTENSION
     Route: 048
  10. DIAZEPAM [Concomitant]
     Indication: RESTLESSNESS
     Route: 048
  11. L-THYROXIN [Concomitant]
     Indication: GOITRE
     Route: 048
  12. MACROGOL [Concomitant]
     Indication: CONSTIPATION
     Route: 048
  13. NIFE [Concomitant]
     Indication: HYPERTENSION
     Route: 048
  14. NITRENDIPINE [Concomitant]
     Indication: HYPERTENSION
     Route: 048

REACTIONS (4)
  - DRUG INTERACTION [None]
  - HALLUCINATION, VISUAL [None]
  - HYPONATRAEMIA [None]
  - VOMITING [None]
